FAERS Safety Report 7718841-1 (Version None)
Quarter: 2011Q3

REPORT INFORMATION
  Report Type: 
  Country: None (occurrence: None)
  Receive Date: 20110830
  Receipt Date: 20110822
  Transmission Date: 20111222
  Serious: Yes (Other)
  Sender: FDA-Public Use
  Company Number: US-BAYER-2011-077156

PATIENT
  Sex: Female

DRUGS (1)
  1. MIRENA [Suspect]
     Indication: CONTRACEPTION
     Dosage: UNK
     Route: 015
     Dates: start: 20110706, end: 20110708

REACTIONS (4)
  - POST PROCEDURAL HAEMORRHAGE [None]
  - PROCTALGIA [None]
  - DEVICE DISLOCATION [None]
  - PROCEDURAL PAIN [None]
